FAERS Safety Report 21410797 (Version 2)
Quarter: 2023Q1

REPORT INFORMATION
  Report Type: Spontaneous
  Country: TW (occurrence: TW)
  Receive Date: 20221005
  Receipt Date: 20230301
  Transmission Date: 20230418
  Serious: Yes (Other)
  Sender: FDA-Public Use
  Company Number: TW-PFIZER INC-PV202200068429

PATIENT
  Age: 49 Year
  Sex: Male
  Weight: 81.1 kg

DRUGS (4)
  1. VORICONAZOLE [Interacting]
     Active Substance: VORICONAZOLE
     Indication: Aspergillus test positive
     Dosage: 4.4 MG/KG(Q12H)
     Route: 030
  2. VORICONAZOLE [Interacting]
     Active Substance: VORICONAZOLE
     Indication: Atypical pneumonia
  3. VORICONAZOLE [Interacting]
     Active Substance: VORICONAZOLE
     Indication: Acute respiratory distress syndrome
  4. PERAMIVIR [Concomitant]
     Active Substance: PERAMIVIR

REACTIONS (3)
  - Drug-disease interaction [Recovered/Resolved]
  - Drug level increased [Recovered/Resolved]
  - Toxicity to various agents [Recovered/Resolved]
